FAERS Safety Report 5755255-8 (Version None)
Quarter: 2008Q2

REPORT INFORMATION
  Report Type: 
  Country: None (occurrence: None)
  Receive Date: 20080529
  Receipt Date: 20080529
  Transmission Date: 20081010
  Serious: Yes (Hospitalization)
  Sender: FDA-Public Use
  Company Number: None

PATIENT
  Sex: Male
  Weight: 76 kg

DRUGS (9)
  1. SORAFENIB [Suspect]
     Indication: PROSTATE CANCER
     Dosage: 400 MG QD PO
     Route: 048
     Dates: start: 20080116
  2. LUPRON [Concomitant]
  3. IMMUNE [Concomitant]
  4. OS-CAL [Concomitant]
  5. ASPIRIN [Concomitant]
  6. VITAMIN E [Concomitant]
  7. NORCO [Concomitant]
  8. VITAMIN CAP [Concomitant]
  9. ASCORBIC ACID [Concomitant]

REACTIONS (2)
  - ABDOMINAL PAIN [None]
  - CONSTIPATION [None]
